FAERS Safety Report 4335716-9 (Version None)
Quarter: 2004Q2

REPORT INFORMATION
  Report Type: 
  Country: None (occurrence: None)
  Receive Date: 20040406
  Receipt Date: 20040323
  Transmission Date: 20050107
  Serious: Yes (Life-Threatening, Hospitalization)
  Sender: FDA-Public Use
  Company Number: 945

PATIENT
  Age: 17 Year
  Sex: Female
  Weight: 49.8957 kg

DRUGS (4)
  1. AMNESTEEM [Suspect]
     Indication: ACNE
     Dosage: SEE IMAGE
     Route: 048
     Dates: start: 20030201, end: 20040201
  2. AMNESTEEM [Suspect]
     Indication: ACNE
     Dosage: SEE IMAGE
     Route: 048
     Dates: start: 20030201, end: 20040201
  3. CORTICOSTEROID [Concomitant]
  4. TYLENOL W/ CODEINE NO. 3 [Concomitant]

REACTIONS (13)
  - ABDOMINAL PAIN UPPER [None]
  - ARTHRALGIA [None]
  - DEHYDRATION [None]
  - DRUG INTERACTION [None]
  - HEADACHE [None]
  - HEARING IMPAIRED [None]
  - INFECTIOUS MONONUCLEOSIS [None]
  - PANIC ATTACK [None]
  - PHARYNGITIS STREPTOCOCCAL [None]
  - SUICIDAL IDEATION [None]
  - THROAT TIGHTNESS [None]
  - TONSILLITIS [None]
  - VISION BLURRED [None]
